FAERS Safety Report 17048385 (Version 1)
Quarter: 2019Q4

REPORT INFORMATION
  Report Type: Spontaneous
  Country: JP (occurrence: JP)
  Receive Date: 20191119
  Receipt Date: 20191119
  Transmission Date: 20200122
  Serious: Yes (Hospitalization, Other)
  Sender: FDA-Public Use
  Company Number: JP-AMNEAL PHARMACEUTICALS-2019-AMRX-02676

PATIENT
  Age: 73 Year
  Sex: Male

DRUGS (1)
  1. ENTECAVIR. [Suspect]
     Active Substance: ENTECAVIR
     Indication: PRODUCT USED FOR UNKNOWN INDICATION
     Dosage: UNK, AS NEEDED
     Route: 048

REACTIONS (1)
  - Fanconi syndrome acquired [Recovering/Resolving]
